FAERS Safety Report 19244614 (Version 1)
Quarter: 2021Q2

REPORT INFORMATION
  Report Type: Spontaneous
  Country: US (occurrence: US)
  Receive Date: 20210512
  Receipt Date: 20210512
  Transmission Date: 20210717
  Serious: No
  Sender: FDA-Public Use
  Company Number: US-TEVA-2021-US-1903223

PATIENT
  Sex: Female

DRUGS (3)
  1. AUSTEDO [Suspect]
     Active Substance: DEUTETRABENAZINE
     Indication: DYSKINESIA
  2. AUSTEDO [Suspect]
     Active Substance: DEUTETRABENAZINE
     Indication: TREMOR
  3. AUSTEDO [Suspect]
     Active Substance: DEUTETRABENAZINE
     Indication: HUNTINGTON^S DISEASE
     Dosage: 12 MILLIGRAM DAILY;
     Route: 065
     Dates: start: 20210323, end: 20210401

REACTIONS (5)
  - Tremor [Unknown]
  - Drug ineffective [Unknown]
  - Emotional disorder [Unknown]
  - Nausea [Unknown]
  - Affective disorder [Unknown]

NARRATIVE: CASE EVENT DATE: 20210323
